FAERS Safety Report 7005120-3 (Version None)
Quarter: 2010Q3

REPORT INFORMATION
  Report Type: 
  Country: None (occurrence: None)
  Receive Date: 20100921
  Receipt Date: 20100913
  Transmission Date: 20110219
  Serious: No
  Sender: FDA-Public Use
  Company Number: IL-ASTRAZENECA-2010SE43490

PATIENT
  Age: 39 Year
  Sex: Female

DRUGS (8)
  1. SEROQUEL [Suspect]
     Indication: SCHIZOPHRENIA
     Route: 048
     Dates: start: 20100621
  2. SEROQUEL [Suspect]
     Route: 048
     Dates: start: 20100828
  3. ZUCLOPENTHIXOL DECANOATE [Concomitant]
     Route: 065
  4. VENLAFAXINE AS HYDROCHLORIDE [Concomitant]
     Route: 065
  5. BIPERIDEN HYDROCHLORIDE TAB [Concomitant]
     Route: 065
  6. CLONAZEPAM [Concomitant]
     Route: 065
  7. POTASSIUM CHLORIDE [Concomitant]
     Route: 065
  8. FERROUS [Concomitant]
     Route: 065

REACTIONS (1)
  - LEUKOPENIA [None]
